FAERS Safety Report 9929544 (Version 2)
Quarter: 2014Q1

REPORT INFORMATION
  Report Type: Spontaneous
  Country: US (occurrence: ES)
  Receive Date: 20140227
  Receipt Date: 20140318
  Transmission Date: 20141002
  Serious: Yes (Hospitalization)
  Sender: FDA-Public Use
  Company Number: ES-FRI-1000054681

PATIENT
  Age: 59 Year
  Sex: Male
  Weight: 88 kg

DRUGS (9)
  1. ROFLUMILAST [Suspect]
     Indication: CHRONIC OBSTRUCTIVE PULMONARY DISEASE
     Dosage: 500 MCG
     Route: 048
     Dates: start: 20121123
  2. ROFLUMILAST [Suspect]
     Dosage: 250 MCG
     Route: 048
  3. BISOPROLOL [Concomitant]
     Dates: start: 2013
  4. RAMIPRIL [Concomitant]
     Dates: start: 2013
  5. PLAVIX [Concomitant]
     Dates: start: 2013
  6. CORTICOIDS [Concomitant]
     Dates: start: 2013
  7. SERETIDE [Concomitant]
     Dates: start: 20110601
  8. SPIRIVA [Concomitant]
     Dates: start: 20110601
  9. RESCUE VENTOLIN [Concomitant]
     Dates: start: 20110601

REACTIONS (6)
  - Blood disorder [Recovered/Resolved]
  - Acute myocardial infarction [Recovered/Resolved]
  - Weight decreased [Recovered/Resolved]
  - Frequent bowel movements [Recovered/Resolved]
  - Diarrhoea [Recovered/Resolved]
  - Off label use [Recovered/Resolved]
